FAERS Safety Report 7432203-6 (Version None)
Quarter: 2011Q2

REPORT INFORMATION
  Report Type: 
  Country: None (occurrence: None)
  Receive Date: 20110422
  Receipt Date: 20110406
  Transmission Date: 20111010
  Serious: No
  Sender: FDA-Public Use
  Company Number: US-B.I. PHARMACEUTICALS,INC./RIDGEFIELD-2011-BP-10157BP

PATIENT
  Sex: Male

DRUGS (7)
  1. PRADAXA [Suspect]
     Indication: CEREBROVASCULAR ACCIDENT PROPHYLAXIS
     Dosage: 300 MG
     Route: 048
     Dates: start: 20110401
  2. VESICARE [Concomitant]
     Indication: PROSTATIC DISORDER
  3. LISINOPRIL [Concomitant]
     Dosage: 10 MG
  4. VESICARE [Concomitant]
     Indication: BLADDER DISORDER
  5. FINASTERIDE [Concomitant]
     Indication: BLADDER DISORDER
  6. ASPIRIN [Concomitant]
  7. LIPITOR [Concomitant]
     Indication: BLOOD CHOLESTEROL INCREASED
     Dosage: 5 MG

REACTIONS (3)
  - LOSS OF CONSCIOUSNESS [None]
  - BLOOD URINE PRESENT [None]
  - FALL [None]
